FAERS Safety Report 8520184-3 (Version None)
Quarter: 2012Q3

REPORT INFORMATION
  Report Type: 
  Country: None (occurrence: None)
  Receive Date: 20120705
  Receipt Date: 20120621
  Transmission Date: 20120928
  Serious: Yes (Hospitalization)
  Sender: FDA-Public Use
  Company Number: 2012SP034177

PATIENT
  Age: 47 Year
  Sex: Female

DRUGS (4)
  1. PEG-INTRON [Suspect]
     Indication: HEPATITIS C
  2. ALBUTEROL SULATE [Concomitant]
  3. REBETOL [Suspect]
     Indication: HEPATITIS C
  4. VICTRELIS [Suspect]
     Indication: HEPATITIS C
     Dosage: 2400 MG;QD;PO
     Route: 048
     Dates: start: 20120401, end: 20120601

REACTIONS (2)
  - INTESTINAL HAEMORRHAGE [None]
  - PANCYTOPENIA [None]
